FAERS Safety Report 25644508 (Version 1)
Quarter: 2025Q3

REPORT INFORMATION
  Report Type: Spontaneous
  Country: MX (occurrence: MX)
  Receive Date: 20250805
  Receipt Date: 20250805
  Transmission Date: 20251020
  Serious: Yes (Death, Other)
  Sender: RANBAXY
  Company Number: MX-SUN PHARMACEUTICAL INDUSTRIES INC-2025R1-520914

PATIENT
  Age: 62 Year
  Sex: Male

DRUGS (5)
  1. PREDNISONE [Suspect]
     Active Substance: PREDNISONE
     Indication: Immunosuppression
     Route: 065
  2. LEFLUNOMIDE [Concomitant]
     Active Substance: LEFLUNOMIDE
     Indication: Immunosuppression
     Route: 065
  3. METHOTREXATE [Concomitant]
     Active Substance: METHOTREXATE
     Indication: Immunosuppression
     Route: 065
  4. RITUXIMAB [Concomitant]
     Active Substance: RITUXIMAB
     Indication: Immunosuppression
     Route: 065
  5. NINTEDANIB [Concomitant]
     Active Substance: NINTEDANIB
     Indication: Immunosuppression
     Route: 065

REACTIONS (4)
  - Metastasis [Fatal]
  - Lung adenocarcinoma [Fatal]
  - Hepatic cancer [Fatal]
  - Bone cancer [Fatal]
